FAERS Safety Report 4509109-5 (Version None)
Quarter: 2004Q4

REPORT INFORMATION
  Report Type: 
  Country: None (occurrence: None)
  Receive Date: 20041025
  Receipt Date: 20040511
  Transmission Date: 20050328
  Serious: Yes (Other)
  Sender: FDA-Public Use
  Company Number: NSADSS2003023945

PATIENT
  Age: 45 Year
  Sex: Female
  Weight: 90.7194 kg

DRUGS (8)
  1. REMICADE [Suspect]
     Indication: RHEUMATOID ARTHRITIS
     Dosage: 500 MG, 1 IN 1 AS NECESSARY, INTRAVENOUS DRIP
     Route: 041
     Dates: start: 20030515, end: 20030515
  2. METHOTREXATE SODIUM [Concomitant]
  3. SEROQUEL [Concomitant]
  4. LORTAB [Concomitant]
  5. CLONAZEPAM [Concomitant]
  6. NEXIUM [Concomitant]
  7. DIOVAN [Concomitant]
  8. ULTRAM [Concomitant]

REACTIONS (1)
  - PULMONARY OEDEMA [None]
